FAERS Safety Report 8967912 (Version 1)
Quarter: 2012Q4

REPORT INFORMATION
  Report Type: 
  Country: US (occurrence: US)
  Receive Date: 20121218
  Receipt Date: 20121218
  Transmission Date: 20130627
  Serious: No
  Sender: FDA-Public Use
  Company Number: US-GLAXOSMITHKLINE-A0973237A

PATIENT
  Age: 65 Year
  Sex: Female

DRUGS (3)
  1. COREG CR [Suspect]
     Indication: HYPERTENSION
     Dosage: 10MG Per day
     Route: 048
     Dates: start: 201105
  2. ADDERALL [Concomitant]
  3. VYVANSE [Concomitant]

REACTIONS (4)
  - Blood pressure increased [Unknown]
  - Feeling hot [Unknown]
  - Headache [Unknown]
  - Product quality issue [Unknown]
